FAERS Safety Report 5895320-8 (Version None)
Quarter: 2008Q3

REPORT INFORMATION
  Report Type: 
  Country: None (occurrence: None)
  Receive Date: 20080709
  Receipt Date: 20080709
  Transmission Date: 20090109
  Serious: No
  Sender: FDA-Public Use
  Company Number: None

PATIENT
  Age: 31 Year
  Sex: Male
  Weight: 78.4723 kg

DRUGS (1)
  1. PRO HEALTH ORAL RINSE CREST PRO HEALTH [Suspect]
     Indication: ORAL DISORDER
     Dosage: DAILY
     Dates: start: 20080101, end: 20080701

REACTIONS (4)
  - AGEUSIA [None]
  - PHARMACEUTICAL PRODUCT COMPLAINT [None]
  - POOR QUALITY DRUG ADMINISTERED [None]
  - TOOTH DISCOLOURATION [None]
